FAERS Safety Report 11565771 (Version 1)
Quarter: 2015Q3

REPORT INFORMATION
  Report Type: Spontaneous
  Country: US (occurrence: US)
  Receive Date: 20150916
  Receipt Date: 20150916
  Transmission Date: 20151125
  Serious: No
  Sender: FDA-Public Use
  Company Number: US-ELI_LILLY_AND_COMPANY-US200905001840

PATIENT
  Age: 84 Year
  Sex: Female

DRUGS (1)
  1. FORTEO [Suspect]
     Active Substance: TERIPARATIDE

REACTIONS (10)
  - Glossodynia [Unknown]
  - Oral pain [Unknown]
  - Oral mucosal erythema [Unknown]
  - Adverse drug reaction [Unknown]
  - Cheilitis [Unknown]
  - Oral disorder [Unknown]
  - Tongue discolouration [Unknown]
  - Chapped lips [Unknown]
  - Lip exfoliation [Unknown]
  - Lip pain [Unknown]

NARRATIVE: CASE EVENT DATE: 200904
